FAERS Safety Report 20076484 (Version 4)
Quarter: 2022Q4

REPORT INFORMATION
  Report Type: Report from Study
  Country: CO (occurrence: CO)
  Receive Date: 20211116
  Receipt Date: 20221102
  Transmission Date: 20230112
  Serious: Yes (Hospitalization, Other)
  Sender: FDA-Public Use
  Company Number: CO-ASTELLAS-2021US043836

PATIENT
  Age: 65 Year
  Sex: Male

DRUGS (4)
  1. ENZALUTAMIDE [Suspect]
     Active Substance: ENZALUTAMIDE
     Indication: Hormone-refractory prostate cancer
     Route: 048
     Dates: start: 20211026
  2. ENZALUTAMIDE [Suspect]
     Active Substance: ENZALUTAMIDE
     Route: 048
  3. ENZALUTAMIDE [Suspect]
     Active Substance: ENZALUTAMIDE
     Route: 048
     Dates: end: 202112
  4. ENZALUTAMIDE [Suspect]
     Active Substance: ENZALUTAMIDE
     Route: 048

REACTIONS (14)
  - Pulmonary oedema [Not Recovered/Not Resolved]
  - Chest pain [Recovering/Resolving]
  - COVID-19 [Recovering/Resolving]
  - Hypoxia [Recovering/Resolving]
  - Insomnia [Unknown]
  - Amnesia [Unknown]
  - Bone disorder [Not Recovered/Not Resolved]
  - Chills [Recovered/Resolved]
  - Discouragement [Recovered/Resolved]
  - Bone pain [Recovered/Resolved]
  - Memory impairment [Unknown]
  - Spinal pain [Not Recovered/Not Resolved]
  - Back pain [Not Recovered/Not Resolved]
  - Off label use [Unknown]

NARRATIVE: CASE EVENT DATE: 20210101
